FAERS Safety Report 7972015-8 (Version None)
Quarter: 2011Q4

REPORT INFORMATION
  Report Type: 
  Country: None (occurrence: None)
  Receive Date: 20111212
  Receipt Date: 20111201
  Transmission Date: 20120403
  Serious: Yes (Hospitalization)
  Sender: FDA-Public Use
  Company Number: US-ASTRAZENECA-2011SE41410

PATIENT
  Age: 57 Year
  Sex: Female

DRUGS (3)
  1. OMEPRAZOLE [Suspect]
     Route: 048
  2. NEXIUM [Suspect]
     Route: 048
  3. DEXILANT [Concomitant]

REACTIONS (8)
  - GASTROOESOPHAGEAL REFLUX DISEASE [None]
  - VOMITING [None]
  - DRUG INEFFECTIVE [None]
  - CHOKING [None]
  - DRUG DOSE OMISSION [None]
  - ROAD TRAFFIC ACCIDENT [None]
  - GASTRIC PERFORATION [None]
  - OESOPHAGEAL DISORDER [None]
